FAERS Safety Report 12835720 (Version 2)
Quarter: 2016Q4

REPORT INFORMATION
  Report Type: Spontaneous
  Country: US (occurrence: US)
  Receive Date: 20161011
  Receipt Date: 20161017
  Transmission Date: 20170207
  Serious: Yes (Death)
  Sender: FDA-Public Use
  Company Number: US-ROCHE-1839063

PATIENT
  Age: 55 Year
  Weight: 88.08 kg

DRUGS (4)
  1. PREDNISONE. [Concomitant]
     Active Substance: PREDNISONE
     Route: 048
     Dates: start: 20160930
  2. TECENTRIQ [Suspect]
     Active Substance: ATEZOLIZUMAB
     Indication: BLADDER CANCER
     Dosage: PATIENT DIED AFTER THIS ONE DOSE
     Route: 042
     Dates: start: 20160915
  3. MILK THISTLE [Concomitant]
     Active Substance: MILK THISTLE
  4. VITAMIN C [Concomitant]
     Active Substance: ASCORBIC ACID

REACTIONS (5)
  - Sudden death [Fatal]
  - Abdominal pain [Fatal]
  - Arthralgia [Fatal]
  - Transaminases increased [Fatal]
  - Pyrexia [Fatal]

NARRATIVE: CASE EVENT DATE: 20160926
